FAERS Safety Report 19472514 (Version 2)
Quarter: 2021Q3

REPORT INFORMATION
  Report Type: Spontaneous
  Country: DE (occurrence: DE)
  Receive Date: 20210629
  Receipt Date: 20210723
  Transmission Date: 20211014
  Serious: Yes (Other)
  Sender: FDA-Public Use
  Company Number: DE-TEVA-2021-DE-1926025

PATIENT
  Age: 37 Year
  Sex: Female
  Weight: 56 kg

DRUGS (2)
  1. ESCITALOPRAM [Suspect]
     Active Substance: ESCITALOPRAM OXALATE
     Dosage: 23 KW (MON?WED?FRI?SUN) 10MG;?KW 24 (MON?WED?FRI?SUN) 5MG;?PLANNED INTAKE UNTIL JUNE 20TH, 2021 , UN
     Route: 048
     Dates: start: 20210607, end: 20210613
  2. ESCITALOPRAM [Suspect]
     Active Substance: ESCITALOPRAM OXALATE
     Dosage: 22ND WEEK (MON?WED?FRI?SUN) 15MG TAKEN , UNIT DOSE : 60 MG
     Route: 048
     Dates: start: 20210531, end: 20210606

REACTIONS (8)
  - Nausea [Unknown]
  - Injury [Unknown]
  - Dizziness [Unknown]
  - Balance disorder [Unknown]
  - Eye pain [Unknown]
  - Gait disturbance [Unknown]
  - Arrhythmia [Unknown]
  - Feeling cold [Unknown]

NARRATIVE: CASE EVENT DATE: 20210601
